FAERS Safety Report 15316196 (Version 1)
Quarter: 2018Q3

REPORT INFORMATION
  Report Type: Spontaneous
  Country: US (occurrence: US)
  Receive Date: 20180816
  Receipt Date: 20180816
  Transmission Date: 20181010
  Serious: No
  Sender: FDA-Public Use
  Company Number: None

PATIENT
  Age: 24 Year
  Sex: Female

DRUGS (1)
  1. BENLYSTA [Suspect]
     Active Substance: BELIMUMAB
     Dates: start: 20180425, end: 20180816

REACTIONS (4)
  - Nausea [None]
  - Diarrhoea [None]
  - Weight decreased [None]
  - Eating disorder [None]

NARRATIVE: CASE EVENT DATE: 20180425
